FAERS Safety Report 20324997 (Version 1)
Quarter: 2022Q1

REPORT INFORMATION
  Report Type: Spontaneous
  Country: BE (occurrence: BE)
  Receive Date: 20220111
  Receipt Date: 20220111
  Transmission Date: 20220423
  Serious: Yes (Hospitalization, Other)
  Sender: FDA-Public Use
  Company Number: BE-CELLTRION INC.-2022BE000034

PATIENT

DRUGS (16)
  1. RITUXIMAB [Suspect]
     Active Substance: RITUXIMAB
     Indication: Splenic marginal zone lymphoma
     Route: 065
  2. BENDAMUSTINE [Suspect]
     Active Substance: BENDAMUSTINE
     Indication: Splenic marginal zone lymphoma
     Route: 065
  3. PHENOBARBITAL [Concomitant]
     Active Substance: PHENOBARBITAL
  4. LEVETIRACETAM [Concomitant]
     Active Substance: LEVETIRACETAM
  5. DOXYCYCLINE [Concomitant]
     Active Substance: DOXYCYCLINE
  6. VORICONAZOLE [Concomitant]
     Active Substance: VORICONAZOLE
     Dosage: 300 MG EVERY 12 HOUR (LOADING DOSE ON DAY 1)
  7. VORICONAZOLE [Concomitant]
     Active Substance: VORICONAZOLE
     Dosage: 200 MG EVERY 12 HOUR (MAINTENANCE DOSE)
  8. MOXIFLOXACIN [Concomitant]
     Active Substance: MOXIFLOXACIN
  9. ISAVUCONAZOLE [Concomitant]
     Active Substance: ISAVUCONAZOLE
     Dosage: 200 MG, EVERY 8 HOURS (LOADING DOSE)
  10. ISAVUCONAZOLE [Concomitant]
     Active Substance: ISAVUCONAZOLE
     Dosage: 200 MG, EVERY 24 HOURS (MAINTENANCE DOSE)
  11. AMPHOTERICIN B [Concomitant]
     Active Substance: AMPHOTERICIN B
     Route: 042
  12. AMPHOTERICIN B [Concomitant]
     Active Substance: AMPHOTERICIN B
     Dosage: 200 MG, EVERY 12 HOURS
     Route: 048
  13. AMPHOTERICIN B [Concomitant]
     Active Substance: AMPHOTERICIN B
     Dosage: 150 MG, EVERY 24 HOURS
     Route: 048
  14. AMPHOTERICIN B [Concomitant]
     Active Substance: AMPHOTERICIN B
     Dosage: 100 MG, EVERY 12 HOURS
     Route: 048
  15. MEROPENEM [Concomitant]
     Active Substance: MEROPENEM
  16. LACOSAMIDE [Concomitant]
     Active Substance: LACOSAMIDE
     Route: 042

REACTIONS (5)
  - Aspergillus infection [Unknown]
  - Pneumonia aspiration [Unknown]
  - Pulmonary nocardiosis [Unknown]
  - Cerebral nocardiosis [Unknown]
  - Off label use [Unknown]
